FAERS Safety Report 4472277-8 (Version None)
Quarter: 2004Q4

REPORT INFORMATION
  Report Type: 
  Country: None (occurrence: None)
  Receive Date: 20041007
  Receipt Date: 20040928
  Transmission Date: 20050328
  Serious: No
  Sender: FDA-Public Use
  Company Number: TPA2004A01170

PATIENT
  Age: 57 Year
  Sex: Female
  Weight: 81.6475 kg

DRUGS (10)
  1. ACTOS [Suspect]
     Indication: DIABETES MELLITUS NON-INSULIN-DEPENDENT
     Dosage: 45 MG, 1 IN 1 D, PER ORAL
     Route: 048
     Dates: start: 20040804
  2. METFORMIN (METFORMIN) (500 MILLIGRAM) [Concomitant]
  3. GLUCOTROL (GLIPIZIDE) (10 MILLIGRAM) [Concomitant]
  4. PRINIVIL (LISINOPRIL) (20 MILLIGRAM) [Concomitant]
  5. COZAAR (LOSARTAN POTASSIUM) (50 MILLIGRAM) [Concomitant]
  6. PRAVACHOL (PRAVASTATIN SODIUM) (20 MILLIGRAM) [Concomitant]
  7. HYDROCHLOROTHIAZIDE (HYDROCHLOROTHIAZIDE) (25 MILLIGRAM) [Concomitant]
  8. VITAMIN C (ASCORBIC ACID) (1000 MILLIGRAM) [Concomitant]
  9. CALCIUM (CALCIUM /N/A/) (500 MILLIGRAM) [Concomitant]
  10. VITAMIN E (TOCOPHEROL) (1000 MILLIGRAM) [Concomitant]

REACTIONS (1)
  - BREAST CANCER [None]
